FAERS Safety Report 16346678 (Version 1)
Quarter: 2019Q2

REPORT INFORMATION
  Report Type: Spontaneous
  Country: US (occurrence: US)
  Receive Date: 20190417
  Receipt Date: 20190417
  Transmission Date: 20190711
  Serious: No
  Sender: FDA-Public Use
  Company Number: None

PATIENT
  Sex: Male

DRUGS (1)
  1. TADALAFIL, 20MG [Suspect]
     Active Substance: TADALAFIL
     Indication: HYPERTENSION
     Route: 048
     Dates: start: 20181219

REACTIONS (1)
  - Hospitalisation [None]
